FAERS Safety Report 6386111-2 (Version None)
Quarter: 2009Q4

REPORT INFORMATION
  Report Type: 
  Country: None (occurrence: None)
  Receive Date: 20091002
  Receipt Date: 20081120
  Transmission Date: 20100525
  Serious: No
  Sender: FDA-Public Use
  Company Number: US-ASTRAZENECA-2008UW26074

PATIENT
  Age: 51 Year
  Sex: Female
  Weight: 49.9 kg

DRUGS (3)
  1. ARIMIDEX [Suspect]
     Indication: BREAST CANCER FEMALE
     Route: 048
     Dates: start: 20081119
  2. ACYCLOVIR [Concomitant]
  3. GUAIFENESIN [Concomitant]

REACTIONS (4)
  - INFLUENZA LIKE ILLNESS [None]
  - OROPHARYNGEAL PAIN [None]
  - PAIN [None]
  - SLUGGISHNESS [None]
